FAERS Safety Report 7852856 (Version 3)
Quarter: 2013Q4

REPORT INFORMATION
  Report Type: Spontaneous
  Country: US (occurrence: US)
  Receive Date: 20110311
  Receipt Date: 20131210
  Transmission Date: 20140711
  Serious: Yes (Hospitalization, Other)
  Sender: FDA-Public Use
  Company Number: US-BAYER-2011-020931

PATIENT
  Age: 32 Year
  Sex: Female

DRUGS (7)
  1. YAZ [Suspect]
     Indication: CONTRACEPTION
  2. CONCERTA [Concomitant]
     Indication: ATTENTION DEFICIT/HYPERACTIVITY DISORDER
     Dosage: 36 MG, DAILY
     Route: 048
  3. ANTIHISTAMINES [Concomitant]
     Indication: HYPERSENSITIVITY
  4. SYNTHROID [Concomitant]
     Indication: HYPOTHYROIDISM
  5. NITROFURANTOIN [Concomitant]
  6. CLARITIN D [Concomitant]
     Dosage: UNK;PRN
  7. ACIPHEX [Concomitant]
     Route: 048

REACTIONS (2)
  - Biliary dyskinesia [None]
  - Abdominal pain [Unknown]
